FAERS Safety Report 9793129 (Version 1)
Quarter: 2014Q1

REPORT INFORMATION
  Report Type: Spontaneous
  Country: DE (occurrence: DE)
  Receive Date: 20140102
  Receipt Date: 20140102
  Transmission Date: 20141002
  Serious: Yes (Other)
  Sender: FDA-Public Use
  Company Number: DE-JNJFOC-20131217972

PATIENT
  Sex: Female

DRUGS (2)
  1. XARELTO [Suspect]
     Indication: PRODUCT USED FOR UNKNOWN INDICATION
     Route: 048
     Dates: start: 201312
  2. MARCUMAR [Concomitant]
     Route: 065
     Dates: end: 201312

REACTIONS (3)
  - International normalised ratio increased [Recovering/Resolving]
  - Prothrombin time abnormal [Unknown]
  - Gamma-glutamyltransferase increased [Unknown]
